FAERS Safety Report 8953282 (Version 2)
Quarter: 2013Q2

REPORT INFORMATION
  Report Type: Spontaneous
  Country: US (occurrence: US)
  Receive Date: 20121206
  Receipt Date: 20130502
  Transmission Date: 20140414
  Serious: Yes (Other)
  Sender: FDA-Public Use
  Company Number: US-UCBSA-072224

PATIENT
  Age: 19 Year
  Sex: Female
  Weight: 54 kg

DRUGS (1)
  1. KEPPRA XR [Suspect]
     Indication: CONVULSION
     Dosage: STRENGTH: 500 MG
     Dates: start: 20001205

REACTIONS (3)
  - Cerebrovascular accident [Not Recovered/Not Resolved]
  - Convulsion [Unknown]
  - Inappropriate schedule of drug administration [Unknown]
